FAERS Safety Report 21011262 (Version 1)
Quarter: 2022Q2

REPORT INFORMATION
  Report Type: Spontaneous
  Country: US (occurrence: None)
  Receive Date: 20220624
  Receipt Date: 20220624
  Transmission Date: 20220720
  Serious: No
  Sender: FDA-Public Use
  Company Number: None

PATIENT
  Age: 64 Year
  Sex: Male

DRUGS (1)
  1. DIMETHYL FUMARATE [Suspect]
     Active Substance: DIMETHYL FUMARATE
     Dosage: FREQUENCY : TWICE A DAY;?
     Route: 048
     Dates: start: 2017

REACTIONS (5)
  - Pulmonary oedema [None]
  - Dyspnoea [None]
  - Blood glucose increased [None]
  - Fall [None]
  - Multiple sclerosis [None]

NARRATIVE: CASE EVENT DATE: 20220614
